FAERS Safety Report 9524647 (Version 1)
Quarter: 2013Q3

REPORT INFORMATION
  Report Type: Spontaneous
  Country: GB (occurrence: None)
  Receive Date: 20130912
  Receipt Date: 20130912
  Transmission Date: 20140515
  Serious: Yes (Hospitalization, Other)
  Sender: FDA-Public Use
  Company Number: AUR-APL-2013-07493

PATIENT
  Age: 68 Year
  Sex: Male

DRUGS (1)
  1. AMOXICILLIN (AMOXICILLIN) [Suspect]
     Indication: LOWER RESPIRATORY TRACT INFECTION
     Dosage: 750 MG (250 MG, 3 IN 1 D), ORAL
     Route: 048
     Dates: start: 20120215

REACTIONS (6)
  - Treatment failure [None]
  - Lung neoplasm malignant [None]
  - Pallor [None]
  - Hyperhidrosis [None]
  - Somnolence [None]
  - Oxygen saturation decreased [None]
